FAERS Safety Report 6385841-6 (Version None)
Quarter: 2009Q4

REPORT INFORMATION
  Report Type: 
  Country: None (occurrence: None)
  Receive Date: 20091002
  Receipt Date: 20090925
  Transmission Date: 20100525
  Serious: Yes (Other)
  Sender: FDA-Public Use
  Company Number: US-ASTRAZENECA-2009UW17741

PATIENT
  Age: 44 Year
  Sex: Female
  Weight: 77.1 kg

DRUGS (8)
  1. SEROQUEL [Suspect]
     Indication: BIPOLAR DISORDER
     Route: 048
     Dates: start: 20030101, end: 20080101
  2. SEROQUEL [Suspect]
     Indication: DEPRESSION
     Route: 048
     Dates: start: 20030101, end: 20080101
  3. SEROQUEL [Suspect]
     Indication: POST-TRAUMATIC STRESS DISORDER
     Route: 048
     Dates: start: 20030101, end: 20080101
  4. ZYPREXA [Concomitant]
     Indication: BIPOLAR DISORDER
     Dosage: 10 MG AND 15 MG
     Dates: start: 20080101
  5. ZYPREXA [Concomitant]
     Indication: DEPRESSION
     Dosage: 10 MG AND 15 MG
     Dates: start: 20080101
  6. ZYPREXA [Concomitant]
     Indication: POST-TRAUMATIC STRESS DISORDER
     Dosage: 10 MG AND 15 MG
     Dates: start: 20080101
  7. ABILIFY [Concomitant]
  8. GEODON [Concomitant]

REACTIONS (3)
  - COMA [None]
  - OBESITY [None]
  - TYPE 2 DIABETES MELLITUS [None]
